FAERS Safety Report 17141940 (Version 2)
Quarter: 2019Q4

REPORT INFORMATION
  Report Type: Spontaneous
  Country: FR (occurrence: FR)
  Receive Date: 20191211
  Receipt Date: 20191220
  Transmission Date: 20200122
  Serious: Yes (Other)
  Sender: FDA-Public Use
  Company Number: FR-MYLANLABS-2019M1122605

PATIENT
  Age: 92 Year
  Sex: Male

DRUGS (7)
  1. BETAHISTINE [Suspect]
     Active Substance: BETAHISTINE
     Indication: VERTIGO
     Dosage: 2 DOSAGE FORM, QD
     Route: 048
     Dates: start: 20190103
  2. CETIRIZINE [Suspect]
     Active Substance: CETIRIZINE HYDROCHLORIDE
     Indication: ECZEMA
     Dosage: 10 MILLIGRAM, QD
     Route: 048
     Dates: start: 20190721
  3. TADENAN 50 MG, CAPSULE MOLLE [Suspect]
     Active Substance: PYGEUM
     Indication: BENIGN PROSTATIC HYPERPLASIA
     Dosage: 100 MILLIGRAM, QD
     Route: 048
     Dates: start: 20180324
  4. KARDEGIC [Suspect]
     Active Substance: ASPIRIN DL-LYSINE
     Indication: CARDIOVASCULAR EVENT PROPHYLAXIS
     Dosage: 1 DOSAGE FORM, QD
     Route: 048
     Dates: start: 20190324
  5. INDAPAMIDE. [Suspect]
     Active Substance: INDAPAMIDE
     Indication: HYPERTENSION
     Dosage: 0.63 MILLIGRAM, QD
     Route: 048
     Dates: start: 20180324
  6. IKOREL [Suspect]
     Active Substance: NICORANDIL
     Indication: CORONARY ARTERY INSUFFICIENCY
     Dosage: 2 DOSAGE FORM, QD
     Route: 048
     Dates: start: 20180324
  7. PERINDOPRIL [Suspect]
     Active Substance: PERINDOPRIL
     Indication: HYPERTENSION
     Dosage: 2 MILLIGRAM, QD
     Route: 048
     Dates: start: 20180324

REACTIONS (1)
  - Photosensitivity reaction [Not Recovered/Not Resolved]

NARRATIVE: CASE EVENT DATE: 201906
